FAERS Safety Report 5955516-3 (Version None)
Quarter: 2008Q4

REPORT INFORMATION
  Report Type: 
  Country: None (occurrence: None)
  Receive Date: 20081117
  Receipt Date: 20081105
  Transmission Date: 20090506
  Serious: Yes (Hospitalization)
  Sender: FDA-Public Use
  Company Number: US-SANOFI-SYNTHELABO-F03200800118

PATIENT
  Sex: Male

DRUGS (12)
  1. NEXIUM [Concomitant]
     Indication: DRUG USE FOR UNKNOWN INDICATION
     Dosage: UNK
     Route: 065
  2. GEMCITABINE HCL [Suspect]
     Indication: PANCREATIC CARCINOMA
     Route: 042
     Dates: start: 20081008, end: 20081008
  3. CETUXIMAB [Suspect]
     Indication: PANCREATIC CARCINOMA
     Dosage: 1025 MG 1/2 WEEK
     Route: 042
     Dates: start: 20081008, end: 20081008
  4. OXALIPLATIN [Suspect]
     Indication: PANCREATIC CARCINOMA
     Dosage: 205 MG 1/2 WEEK
     Route: 042
     Dates: start: 20080730, end: 20080730
  5. PROCHLORPERAZINE [Concomitant]
     Dosage: UNK
     Route: 065
  6. ONDANSETRON [Concomitant]
     Indication: DRUG USE FOR UNKNOWN INDICATION
     Dosage: UNK
     Route: 065
  7. LEVEMIR [Concomitant]
     Indication: DRUG USE FOR UNKNOWN INDICATION
     Dosage: UNK
     Route: 065
  8. NOVOLOG [Concomitant]
     Indication: DRUG USE FOR UNKNOWN INDICATION
     Dosage: UNK
     Route: 065
  9. POLYETHYLENE GLYCOL [Concomitant]
     Indication: DRUG USE FOR UNKNOWN INDICATION
     Dosage: UNK
     Route: 065
  10. LISINOPRIL [Concomitant]
     Indication: DRUG USE FOR UNKNOWN INDICATION
     Dosage: UNK
     Route: 065
  11. DILAUDID [Concomitant]
     Indication: DRUG USE FOR UNKNOWN INDICATION
     Dosage: UNK
     Route: 065
  12. MORPHINE [Concomitant]
     Indication: DRUG USE FOR UNKNOWN INDICATION
     Dosage: UNK
     Route: 065

REACTIONS (8)
  - DEHYDRATION [None]
  - EXTRAVASATION [None]
  - NAUSEA [None]
  - NEUTROPENIA [None]
  - PAIN [None]
  - THROMBOCYTOPENIA [None]
  - THROMBOPHLEBITIS [None]
  - URINARY RETENTION [None]
